FAERS Safety Report 4538490-6 (Version None)
Quarter: 2004Q4

REPORT INFORMATION
  Report Type: 
  Country: None (occurrence: None)
  Receive Date: 20041223
  Receipt Date: 20041223
  Transmission Date: 20050328
  Serious: No
  Sender: FDA-Public Use
  Company Number: None

PATIENT
  Age: 67 Year
  Sex: Male
  Weight: 107.5025 kg

DRUGS (5)
  1. REMICADE [Suspect]
     Indication: RHEUMATOID ARTHRITIS
     Dosage: 325 MG IV Q 8 WK
     Route: 042
     Dates: start: 20040301, end: 20041101
  2. METHOTREXATE [Concomitant]
  3. TYLENOL [Concomitant]
  4. FOLIC ACID [Concomitant]
  5. ASPIRIN [Concomitant]

REACTIONS (2)
  - INFUSION RELATED REACTION [None]
  - URTICARIA [None]
